FAERS Safety Report 21076517 (Version 1)
Quarter: 2022Q3

REPORT INFORMATION
  Report Type: Spontaneous
  Country: US (occurrence: None)
  Receive Date: 20220713
  Receipt Date: 20220713
  Transmission Date: 20221027
  Serious: Yes (Other)
  Sender: FDA-Public Use
  Company Number: None

PATIENT
  Age: 68 Year
  Sex: Female
  Weight: 54 kg

DRUGS (4)
  1. PAXLOVID [Suspect]
     Active Substance: NIRMATRELVIR\RITONAVIR
     Indication: COVID-19
     Dosage: FREQUENCY : TWICE A DAY;?
     Route: 048
     Dates: start: 20220712, end: 20220713
  2. Viatmin D-3 [Concomitant]
     Dates: start: 20170101
  3. VITAMIN C [Concomitant]
     Active Substance: ASCORBIC ACID
     Dates: start: 20000101
  4. Fish oil tablet [Concomitant]
     Dates: start: 20220301

REACTIONS (5)
  - Abdominal pain [None]
  - Abdominal distension [None]
  - Muscular weakness [None]
  - Headache [None]
  - Nausea [None]

NARRATIVE: CASE EVENT DATE: 20220713
